FAERS Safety Report 9351255 (Version 2)
Quarter: 2014Q1

REPORT INFORMATION
  Report Type: Spontaneous
  Country: IT (occurrence: IT)
  Receive Date: 20130617
  Receipt Date: 20140204
  Transmission Date: 20141002
  Serious: Yes (Other)
  Sender: FDA-Public Use
  Company Number: PHHY2013IT059256

PATIENT
  Age: 32 Year
  Sex: Female

DRUGS (3)
  1. VENLAFAXINE [Suspect]
     Dosage: 2.7 G, TOTAL
     Route: 048
     Dates: start: 20130423, end: 20130423
  2. GABAPENTIN [Suspect]
     Dosage: 130 OT, TOTAL
     Route: 048
     Dates: start: 20130423, end: 20130423
  3. XANAX [Suspect]
     Dosage: 40 ML, TOTAL
     Route: 048
     Dates: start: 20130423, end: 20130423

REACTIONS (1)
  - Sopor [Recovering/Resolving]
